FAERS Safety Report 5743524-7 (Version None)
Quarter: 2008Q2

REPORT INFORMATION
  Report Type: 
  Country: None (occurrence: None)
  Receive Date: 20080519
  Receipt Date: 20080519
  Transmission Date: 20081010
  Serious: Yes (Other)
  Sender: FDA-Public Use
  Company Number: None

PATIENT
  Age: 49 Year
  Sex: Female
  Weight: 52.1637 kg

DRUGS (1)
  1. 50% UREA OINTMENT 50% RUVER'S EDGE PHARMACEUTICALS, [Suspect]
     Indication: SKIN FISSURES
     Dosage: 1.5 OZ DAILY TOP
     Route: 061
     Dates: start: 20070906, end: 20080531

REACTIONS (2)
  - PHARMACEUTICAL PRODUCT COMPLAINT [None]
  - SKIN LACERATION [None]
